FAERS Safety Report 10074369 (Version 1)
Quarter: 2014Q2

REPORT INFORMATION
  Report Type: Spontaneous
  Country: GB (occurrence: GB)
  Receive Date: 20140413
  Receipt Date: 20140413
  Transmission Date: 20141212
  Serious: Yes (Hospitalization, Other)
  Sender: FDA-Public Use
  Company Number: GB-MYLANLABS-2014S1007395

PATIENT
  Age: 53 Year
  Sex: Female

DRUGS (16)
  1. MYCOPHENOLATE MOFETIL [Suspect]
     Indication: SYSTEMIC LUPUS ERYTHEMATOSUS
     Route: 048
     Dates: end: 20130215
  2. BELIMUMAB [Suspect]
     Indication: SYSTEMIC LUPUS ERYTHEMATOSUS
     Route: 042
     Dates: start: 20120208
  3. ADCAL D3 [Concomitant]
  4. ALENDRONATE [Concomitant]
     Indication: OSTEOPOROSIS PROPHYLAXIS
  5. ASPIRIN [Concomitant]
     Indication: ANTIPHOSPHOLIPID SYNDROME
     Dosage: 150MG PER DAY
  6. FERROUS FUMARATE [Concomitant]
     Indication: ANAEMIA
  7. FUROSEMIDE [Concomitant]
  8. GABAPENTIN [Concomitant]
     Indication: EPILEPSY
     Dosage: 600MG THREE TIMES PER DAY
  9. HYDROXYCHLOROQUINE [Concomitant]
     Indication: SYSTEMIC LUPUS ERYTHEMATOSUS
     Dosage: 200MG PER DAY
  10. KEPPRA [Concomitant]
     Indication: SYSTEMIC LUPUS ERYTHEMATOSUS
     Dosage: 1250MG TWICE PER DAY
  11. LANSOPRAZOLE [Concomitant]
     Indication: DYSPEPSIA
     Dosage: 30MG TWICE PER DAY
  12. LOSARTAN [Concomitant]
     Indication: HYPERTENSION
     Dosage: 50MG PER DAY
  13. OROTIC ACID [Concomitant]
     Indication: ANAEMIA
  14. PARACETAMOL [Concomitant]
     Indication: ARTHRALGIA
  15. PREDNISOLONE [Concomitant]
  16. PREDNISONE [Concomitant]
     Indication: SYSTEMIC LUPUS ERYTHEMATOSUS

REACTIONS (8)
  - SLE arthritis [Recovered/Resolved]
  - Neutropenia [Recovered/Resolved]
  - Pyrexia [Recovered/Resolved]
  - Infection [Recovered/Resolved]
  - Liver function test abnormal [Recovered/Resolved]
  - C-reactive protein increased [Recovered/Resolved]
  - Febrile neutropenia [Unknown]
  - Pleuritic pain [Unknown]
